FAERS Safety Report 9772637 (Version 3)
Quarter: 2014Q1

REPORT INFORMATION
  Report Type: Spontaneous
  Country: DE (occurrence: DE)
  Receive Date: 20131219
  Receipt Date: 20140318
  Transmission Date: 20141002
  Serious: Yes (Hospitalization)
  Sender: FDA-Public Use
  Company Number: DE-THROMBOGENICS NV-JET-2013-343

PATIENT
  Age: 86 Year
  Sex: Female

DRUGS (3)
  1. JETREA [Suspect]
     Indication: MACULAR HOLE
     Dosage: 0.1 ML, ONE TIME DOSE
     Route: 031
     Dates: start: 20131127, end: 20131127
  2. JETREA [Suspect]
     Indication: VITREOUS ADHESIONS
  3. TIMO VISION [Concomitant]
     Indication: GLAUCOMA
     Dosage: 0.5 %, 2 X
     Dates: start: 20130523

REACTIONS (11)
  - Visual acuity reduced [Recovered/Resolved]
  - Arterial occlusive disease [Unknown]
  - Photophobia [Unknown]
  - Eye pain [Unknown]
  - Ocular hyperaemia [Unknown]
  - Vitreous floaters [Unknown]
  - Vision blurred [Unknown]
  - Tunnel vision [Unknown]
  - Intraocular pressure increased [Unknown]
  - Anterior chamber inflammation [Unknown]
  - Vitreous floaters [Unknown]
